FAERS Safety Report 8615814 (Version 2)
Quarter: 2013Q3

REPORT INFORMATION
  Report Type: Spontaneous
  Country: US (occurrence: US)
  Receive Date: 20120614
  Receipt Date: 20130716
  Transmission Date: 20140515
  Serious: No
  Sender: FDA-Public Use
  Company Number: US-GLAXOSMITHKLINE-A0975633A

PATIENT
  Age: 71 Year
  Sex: Female

DRUGS (2)
  1. NICORETTE MINI LOZENGE, 2MG [Suspect]
     Indication: SMOKING CESSATION THERAPY
     Dates: start: 201204
  2. NICORETTE NICOTINE POLACRILEX LOZENGE, 2MG [Suspect]
     Dates: start: 2012

REACTIONS (5)
  - Malaise [Recovered/Resolved]
  - Tongue coated [Recovered/Resolved]
  - Tooth deposit [Recovered/Resolved]
  - Dysgeusia [Recovered/Resolved]
  - Product quality issue [Unknown]
